FAERS Safety Report 17685528 (Version 1)
Quarter: 2020Q2

REPORT INFORMATION
  Report Type: Spontaneous
  Country: US (occurrence: US)
  Receive Date: 20200420
  Receipt Date: 20200420
  Transmission Date: 20200714
  Serious: Yes (Other)
  Sender: FDA-Public Use
  Company Number: None

PATIENT
  Age: 93 Year
  Sex: Female
  Weight: 61.65 kg

DRUGS (5)
  1. BISOPROLOL=HCTZ [Concomitant]
  2. CLONZAPEAM [Concomitant]
     Active Substance: CLONAZEPAM
  3. CANNABIDIOL [Concomitant]
     Active Substance: CANNABIDIOL
  4. ANASTROZOLE. [Concomitant]
     Active Substance: ANASTROZOLE
  5. IMATINIB. [Suspect]
     Active Substance: IMATINIB MESYLATE
     Indication: CHRONIC MYELOID LEUKAEMIA
     Route: 048
     Dates: start: 20160916

REACTIONS (2)
  - Peripheral swelling [None]
  - Pain in extremity [None]

NARRATIVE: CASE EVENT DATE: 20200420
